FAERS Safety Report 4918155-9 (Version None)
Quarter: 2006Q1

REPORT INFORMATION
  Report Type: 
  Country: None (occurrence: None)
  Receive Date: 20060221
  Receipt Date: 20051007
  Transmission Date: 20060701
  Serious: Yes (Hospitalization, Disabling)
  Sender: FDA-Public Use
  Company Number: US-MERCK-0510USA06216

PATIENT
  Age: 53 Year
  Sex: Male
  Weight: 96 kg

DRUGS (2)
  1. VIOXX [Suspect]
     Indication: ARTHRITIS
     Route: 048
     Dates: start: 20010201, end: 20040901
  2. TYLENOL [Concomitant]
     Route: 065

REACTIONS (8)
  - BLOOD GLUCOSE INCREASED [None]
  - CARDIAC DISORDER [None]
  - CEREBROVASCULAR ACCIDENT [None]
  - CORONARY ARTERY DISEASE [None]
  - DIZZINESS [None]
  - EMOTIONAL DISORDER [None]
  - HYPERTENSION [None]
  - VOMITING [None]
